FAERS Safety Report 5579922-4 (Version None)
Quarter: 2007Q4

REPORT INFORMATION
  Report Type: 
  Country: None (occurrence: None)
  Receive Date: 20071226
  Receipt Date: 20071213
  Transmission Date: 20080405
  Serious: Yes (Other)
  Sender: FDA-Public Use
  Company Number: B0500677A

PATIENT
  Age: 44 Year
  Sex: Female

DRUGS (4)
  1. LAMIVUDINE [Suspect]
     Indication: HIV INFECTION
  2. ZIDOVUDINE [Suspect]
     Indication: HIV INFECTION
  3. INDINIVIR SULFATE [Suspect]
     Indication: HIV INFECTION
  4. RITONAVIR (FORMULATION UNKNOWN) (RITONAVIR) [Suspect]
     Indication: HIV INFECTION

REACTIONS (1)
  - KAPOSI'S SARCOMA [None]
